FAERS Safety Report 6441909-7 (Version None)
Quarter: 2009Q4

REPORT INFORMATION
  Report Type: 
  Country: None (occurrence: None)
  Receive Date: 20091116
  Receipt Date: 20091110
  Transmission Date: 20100525
  Serious: Yes (Hospitalization, Other)
  Sender: FDA-Public Use
  Company Number: IT-ROXANE LABORATORIES, INC.-2009-RO-01150RO

PATIENT
  Age: 49 Year
  Sex: Female

DRUGS (14)
  1. ZIDOVUDINE [Suspect]
     Indication: ANTIRETROVIRAL THERAPY
  2. FLUCONAZOLE [Suspect]
     Indication: CRYPTOCOCCOSIS
     Dosage: 800 MG
     Route: 042
  3. FLUCONAZOLE [Suspect]
     Indication: OPPORTUNISTIC INFECTION PROPHYLAXIS
     Dosage: 200 MG
     Route: 048
  4. FLUCONAZOLE [Suspect]
  5. DEXAMETHASONE [Suspect]
     Route: 042
  6. LAMIVUDINE [Suspect]
     Indication: ANTIRETROVIRAL THERAPY
  7. EFAVIRENZ [Suspect]
     Indication: ANTIRETROVIRAL THERAPY
  8. COTRIMOXAZOLE [Suspect]
     Indication: OPPORTUNISTIC INFECTION PROPHYLAXIS
     Route: 048
  9. AZITHROMYCIN [Suspect]
     Indication: OPPORTUNISTIC INFECTION PROPHYLAXIS
     Route: 048
  10. LIPOSOMIAL AMPHOTERICIN B [Suspect]
     Route: 042
  11. FLUCYTOSINE [Suspect]
     Route: 048
  12. ACETAZOLAMIDE [Suspect]
     Route: 048
  13. DIDANOSINE [Suspect]
     Indication: ANTIRETROVIRAL THERAPY
  14. ATAZANAVIR/RITONAVIR [Suspect]
     Indication: ANTIRETROVIRAL THERAPY

REACTIONS (10)
  - BRAIN HERNIATION [None]
  - BRAIN OEDEMA [None]
  - CRYPTOCOCCUS TEST POSITIVE [None]
  - CYST [None]
  - DRUG INTOLERANCE [None]
  - DRUG THERAPY [None]
  - HEADACHE [None]
  - IMMUNE RECONSTITUTION SYNDROME [None]
  - INTRACRANIAL PRESSURE INCREASED [None]
  - MENTAL STATUS CHANGES [None]
